FAERS Safety Report 23994147 (Version 1)
Quarter: 2024Q2

REPORT INFORMATION
  Report Type: Spontaneous
  Country: US (occurrence: None)
  Receive Date: 20240618
  Receipt Date: 20240618
  Transmission Date: 20240716
  Serious: Yes (Other)
  Sender: FDA-Public Use
  Company Number: None

PATIENT
  Age: 46 Year
  Sex: Female
  Weight: 69.75 kg

DRUGS (1)
  1. CEQUA [Suspect]
     Active Substance: CYCLOSPORINE
     Indication: Dry eye
     Dosage: FREQUENCY : TWICE A DAY;?
     Route: 047
     Dates: start: 20240617, end: 20240618

REACTIONS (5)
  - Hypersensitivity [None]
  - Eye irritation [None]
  - Lacrimation increased [None]
  - Eye pain [None]
  - Eye swelling [None]

NARRATIVE: CASE EVENT DATE: 20240617
